FAERS Safety Report 6265039-2 (Version None)
Quarter: 2009Q3

REPORT INFORMATION
  Report Type: 
  Country: None (occurrence: None)
  Receive Date: 20090708
  Receipt Date: 20090626
  Transmission Date: 20100115
  Serious: Yes (Hospitalization, Disabling)
  Sender: FDA-Public Use
  Company Number: OSCN-NO-0903S-0139

PATIENT
  Age: 36 Year
  Sex: Male

DRUGS (12)
  1. OMNISCAN [Suspect]
     Indication: DRUG USE FOR UNKNOWN INDICATION
     Dosage: 30 ML, SINGLE DOSE,
     Dates: start: 20020429, end: 20020429
  2. GADOLINIUM (UNSPECIFIED) [Concomitant]
  3. MEGLUMINE GADOTERATE (DOTAREM) [Concomitant]
  4. CALCIUM ACETATE [Concomitant]
  5. DIALYSIS VITAMINS [Concomitant]
  6. METOPROLOL TARTRATE [Concomitant]
  7. ACETYLSALICYLIC ACID [Concomitant]
  8. INSULIN [Concomitant]
  9. DILTIAZEM [Concomitant]
  10. LEVOTHYROXINE SODIUM [Concomitant]
  11. OMEPRAZOL [Concomitant]
  12. SACCHARATED IRON OXIDE (VENOFER) [Concomitant]

REACTIONS (2)
  - NEPHROGENIC SYSTEMIC FIBROSIS [None]
  - SCLERODERMA [None]
